FAERS Safety Report 22230986 (Version 1)
Quarter: 2023Q2

REPORT INFORMATION
  Report Type: Spontaneous
  Country: US (occurrence: None)
  Receive Date: 20230420
  Receipt Date: 20230420
  Transmission Date: 20230722
  Serious: No
  Sender: FDA-Public Use
  Company Number: US-ROCHE-3079936

PATIENT
  Sex: Female
  Weight: 59.020 kg

DRUGS (1)
  1. KADCYLA [Suspect]
     Active Substance: ADO-TRASTUZUMAB EMTANSINE
     Indication: Breast cancer
     Dosage: NO
     Route: 065
     Dates: start: 2021, end: 20220415

REACTIONS (1)
  - Arthralgia [Unknown]
